FAERS Safety Report 14034555 (Version 1)
Quarter: 2017Q4

REPORT INFORMATION
  Report Type: Spontaneous
  Country: US (occurrence: US)
  Receive Date: 20171003
  Receipt Date: 20171003
  Transmission Date: 20180321
  Serious: No
  Sender: FDA-Public Use
  Company Number: US-PFIZER INC-2017426240

PATIENT
  Age: 86 Year
  Sex: Female
  Weight: 63.5 kg

DRUGS (1)
  1. ADVIL [Suspect]
     Active Substance: IBUPROFEN
     Indication: ARTHRITIS
     Dosage: 4 DOSE FORMS AT ONCE EACH DAY AS NEEDED (DEPENDING ON WEATHER AND HOW ARTHRITIS IS)
     Route: 048
     Dates: start: 201709, end: 201709

REACTIONS (4)
  - Intentional product use issue [Unknown]
  - Dysphagia [Unknown]
  - Product use complaint [Unknown]
  - Foreign body in respiratory tract [Unknown]

NARRATIVE: CASE EVENT DATE: 201709
